FAERS Safety Report 23768564 (Version 2)
Quarter: 2024Q2

REPORT INFORMATION
  Report Type: Other
  Country: PK (occurrence: None)
  Receive Date: 20240422
  Receipt Date: 20240527
  Transmission Date: 20240716
  Serious: Yes (Death)
  Sender: FDA-Public Use
  Company Number: PK-ROCHE-3550210

PATIENT
  Age: 77 Year
  Sex: Male

DRUGS (1)
  1. RITUXIMAB [Suspect]
     Active Substance: RITUXIMAB
     Indication: Diffuse large B-cell lymphoma
     Dosage: SOLUTION, FOR 8 CYCLES
     Route: 042
     Dates: start: 20240226, end: 20240226

REACTIONS (1)
  - Neoplasm malignant [Fatal]
